FAERS Safety Report 16404130 (Version 1)
Quarter: 2019Q3

REPORT INFORMATION
  Report Type: Spontaneous
  Country: US (occurrence: US)
  Receive Date: 20190606
  Receipt Date: 20190606
  Transmission Date: 20191004
  Serious: Yes (Other)
  Sender: FDA-Public Use
  Company Number: None

PATIENT
  Age: 74 Year
  Sex: Female
  Weight: 73.8 kg

DRUGS (10)
  1. VITAMIN D (CHOLECALCIFEROL) [Concomitant]
     Active Substance: CHOLECALCIFEROL
  2. ASPIRIN ADULT LOW DOSE [Concomitant]
     Active Substance: ASPIRIN
  3. BIOTIN 5000 [Concomitant]
  4. CALCIUM + D3 [Concomitant]
     Active Substance: CALCIUM\CHOLECALCIFEROL
  5. IBRANCE [Suspect]
     Active Substance: PALBOCICLIB
     Indication: BREAST CANCER
     Route: 048
     Dates: start: 20190409
  6. CELECOXIB. [Concomitant]
     Active Substance: CELECOXIB
  7. ARIMIDEX [Concomitant]
     Active Substance: ANASTROZOLE
  8. MONTELUKAST SODIUM. [Concomitant]
     Active Substance: MONTELUKAST SODIUM
  9. MULTIVITAMIN WOMEN 50+ [Concomitant]
  10. LETROZOLE. [Concomitant]
     Active Substance: LETROZOLE

REACTIONS (1)
  - Alopecia [None]
